FAERS Safety Report 20789576 (Version 1)
Quarter: 2022Q2

REPORT INFORMATION
  Report Type: Report from Study
  Country: US (occurrence: US)
  Receive Date: 20220505
  Receipt Date: 20220505
  Transmission Date: 20220720
  Serious: Yes (Hospitalization, Other)
  Sender: FDA-Public Use
  Company Number: US-ABBVIE-22K-163-4380660-00

PATIENT
  Age: 74 Year
  Sex: Male

DRUGS (1)
  1. IMBRUVICA [Suspect]
     Active Substance: IBRUTINIB
     Indication: Lung neoplasm malignant
     Route: 048

REACTIONS (7)
  - Paraparesis [Unknown]
  - Hospitalisation [Recovered/Resolved]
  - Pyrexia [Unknown]
  - Asthenia [Unknown]
  - Cerebrovascular accident [Unknown]
  - Sepsis [Unknown]
  - Muscular weakness [Unknown]

NARRATIVE: CASE EVENT DATE: 20220401
